FAERS Safety Report 16525317 (Version 2)
Quarter: 2019Q3

REPORT INFORMATION
  Report Type: Report from Study
  Country: IE (occurrence: IE)
  Receive Date: 20190703
  Receipt Date: 20190726
  Transmission Date: 20191004
  Serious: Yes (Hospitalization, Other)
  Sender: FDA-Public Use
  Company Number: IE-JNJFOC-20190622083

PATIENT
  Age: 52 Year
  Sex: Female

DRUGS (6)
  1. STELARA [Suspect]
     Active Substance: USTEKINUMAB
     Indication: CROHN^S DISEASE
     Route: 058
     Dates: start: 20180808
  2. ATORVASTATIN [Concomitant]
     Active Substance: ATORVASTATIN
     Route: 050
  3. ESOMEPRAZOLE. [Concomitant]
     Active Substance: ESOMEPRAZOLE MAGNESIUM
     Route: 050
  4. ASPIRIN. [Concomitant]
     Active Substance: ASPIRIN
     Route: 050
  5. FOLIC ACID. [Concomitant]
     Active Substance: FOLIC ACID
     Route: 050
  6. TYLEX [Concomitant]
     Route: 050

REACTIONS (1)
  - Cholecystitis acute [Unknown]

NARRATIVE: CASE EVENT DATE: 20190515
